FAERS Safety Report 15993680 (Version 1)
Quarter: 2019Q1

REPORT INFORMATION
  Report Type: Report from Study
  Country: US (occurrence: US)
  Receive Date: 20190222
  Receipt Date: 20190222
  Transmission Date: 20190418
  Serious: Yes (Hospitalization, Disabling, Other)
  Sender: FDA-Public Use
  Company Number: US-SA-2019SA043424

PATIENT
  Age: 59 Year
  Sex: Male

DRUGS (3)
  1. HUMALOG [Concomitant]
     Active Substance: INSULIN LISPRO
     Dosage: UNK UNK, UNK
     Route: 065
  2. INSULIN GLARGINE [Suspect]
     Active Substance: INSULIN GLARGINE
     Dosage: UNK UNK, UNK
     Route: 065
  3. INSULIN GLARGINE [Suspect]
     Active Substance: INSULIN GLARGINE
     Indication: TYPE 1 DIABETES MELLITUS
     Dosage: 40 U, QD
     Route: 058
     Dates: start: 20181201

REACTIONS (12)
  - Ileostomy [Unknown]
  - Dehydration [Unknown]
  - Myocardial infarction [Unknown]
  - Nerve injury [Unknown]
  - Blood glucose decreased [Unknown]
  - Fall [Unknown]
  - Disability [Not Recovered/Not Resolved]
  - Stent placement [Unknown]
  - Bone disorder [Unknown]
  - Weight decreased [Recovered/Resolved]
  - Blood glucose abnormal [Recovered/Resolved]
  - Surgery [Unknown]
